FAERS Safety Report 11435637 (Version 1)
Quarter: 2015Q3

REPORT INFORMATION
  Report Type: Spontaneous
  Country: US (occurrence: US)
  Receive Date: 20150821
  Receipt Date: 20150821
  Transmission Date: 20151125
  Serious: No
  Sender: FDA-Public Use
  Company Number: US-ELI_LILLY_AND_COMPANY-US201309006968

PATIENT
  Sex: Male

DRUGS (3)
  1. CIALIS [Interacting]
     Active Substance: TADALAFIL
     Dosage: 15 MG, UNK
     Dates: start: 201309
  2. CIALIS [Suspect]
     Active Substance: TADALAFIL
     Indication: ERECTILE DYSFUNCTION
     Dosage: 5 MG, PRN
  3. COUMADIN [Interacting]
     Active Substance: WARFARIN SODIUM
     Dosage: UNK, UNKNOWN

REACTIONS (2)
  - Drug interaction [Unknown]
  - International normalised ratio decreased [Not Recovered/Not Resolved]
